FAERS Safety Report 12363719 (Version 1)
Quarter: 2016Q2

REPORT INFORMATION
  Report Type: Spontaneous
  Country: US (occurrence: US)
  Receive Date: 20160512
  Receipt Date: 20160512
  Transmission Date: 20160815
  Serious: No
  Sender: FDA-Public Use
  Company Number: US-UCBSA-2015014661

PATIENT
  Age: 54 Year
  Sex: Female
  Weight: 58.5 kg

DRUGS (1)
  1. CIMZIA [Suspect]
     Active Substance: CERTOLIZUMAB PEGOL
     Indication: CROHN^S DISEASE
     Dosage: 400 MG INDUCTION DOSE
     Route: 058
     Dates: start: 20150416, end: 20150512

REACTIONS (1)
  - Injection site reaction [Recovering/Resolving]

NARRATIVE: CASE EVENT DATE: 20150501
